FAERS Safety Report 20378517 (Version 1)
Quarter: 2022Q1

REPORT INFORMATION
  Report Type: Spontaneous
  Country: US (occurrence: US)
  Receive Date: 20220126
  Receipt Date: 20220126
  Transmission Date: 20220424
  Serious: No
  Sender: FDA-Public Use
  Company Number: US-RVL_Pharmaceuticals-USA-POI1255202100061

PATIENT
  Age: 28 Year
  Sex: Female

DRUGS (1)
  1. UPNEEQ [Suspect]
     Active Substance: OXYMETAZOLINE HYDROCHLORIDE
     Indication: Prescription drug used without a prescription
     Dosage: OU
     Route: 047
     Dates: start: 202107, end: 202107

REACTIONS (4)
  - Heart rate irregular [Recovered/Resolved]
  - Hyperhidrosis [Recovered/Resolved]
  - Off label use [Recovered/Resolved]
  - Prescription drug used without a prescription [Recovered/Resolved]

NARRATIVE: CASE EVENT DATE: 20210701
